FAERS Safety Report 16690058 (Version 12)
Quarter: 2025Q3

REPORT INFORMATION
  Report Type: Report from Study
  Country: CO (occurrence: CO)
  Receive Date: 20190809
  Receipt Date: 20250808
  Transmission Date: 20251020
  Serious: Yes (Hospitalization, Other)
  Sender: INCYTE
  Company Number: CO-002147023-PHHY2019CO170616

PATIENT
  Age: 70 Year
  Weight: 65 kg

DRUGS (9)
  1. RUXOLITINIB [Suspect]
     Active Substance: RUXOLITINIB
     Indication: Polycythaemia vera
     Dosage: 5 MG, Q12H
  2. RUXOLITINIB [Suspect]
     Active Substance: RUXOLITINIB
     Dosage: 10 MG, Q12H
  3. RUXOLITINIB [Suspect]
     Active Substance: RUXOLITINIB
     Dosage: 20 MG, Q12H
     Route: 065
  4. RUXOLITINIB [Suspect]
     Active Substance: RUXOLITINIB
     Route: 065
  5. RUXOLITINIB [Suspect]
     Active Substance: RUXOLITINIB
     Dosage: 10 MG, QD
  6. RUXOLITINIB [Suspect]
     Active Substance: RUXOLITINIB
     Dosage: 20 MG, Q12H
  7. RUXOLITINIB [Suspect]
     Active Substance: RUXOLITINIB
     Dosage: 10 MG, Q12H
  8. RUXOLITINIB [Suspect]
     Active Substance: RUXOLITINIB
     Dosage: 20 MG, QD
  9. LOSARTAN [Suspect]
     Active Substance: LOSARTAN
     Indication: Hypertension
     Route: 065

REACTIONS (16)
  - Hypersensitivity [Unknown]
  - Insomnia [Unknown]
  - Feeling of despair [Unknown]
  - Haemoglobin decreased [Unknown]
  - Haemoglobin abnormal [Unknown]
  - Pruritus [Recovered/Resolved]
  - Pruritus [Unknown]
  - White blood cell count decreased [Unknown]
  - Inappropriate schedule of product administration [Unknown]
  - Urticaria [Unknown]
  - Gingival bleeding [Unknown]
  - Platelet count increased [Recovered/Resolved]
  - Platelet count decreased [Unknown]
  - Platelet count increased [Unknown]
  - Malignant neoplasm progression [Unknown]
  - Polycythaemia vera [Unknown]
